FAERS Safety Report 12836725 (Version 3)
Quarter: 2016Q4

REPORT INFORMATION
  Report Type: Report from Study
  Country: US (occurrence: US)
  Receive Date: 20161011
  Receipt Date: 20161122
  Transmission Date: 20170207
  Serious: Yes (Hospitalization, Other)
  Sender: FDA-Public Use
  Company Number: US-GILEAD-2016-0237639

PATIENT
  Age: 76 Year
  Sex: Female
  Weight: 64.85 kg

DRUGS (21)
  1. METFORMIN [Concomitant]
     Active Substance: METFORMIN HYDROCHLORIDE
  2. PREDNISONE. [Concomitant]
     Active Substance: PREDNISONE
  3. PROTONIX                           /00661201/ [Concomitant]
     Active Substance: OMEPRAZOLE
  4. AMBRISENTAN [Suspect]
     Active Substance: AMBRISENTAN
     Indication: PULMONARY ARTERIAL HYPERTENSION
     Dosage: 5 MG, BID
     Route: 048
  5. CALCIUM CARBONATE. [Concomitant]
     Active Substance: CALCIUM CARBONATE
  6. CARAFATE [Concomitant]
     Active Substance: SUCRALFATE
  7. HYDROXYCHLOROQUINE [Concomitant]
     Active Substance: HYDROXYCHLOROQUINE
  8. AMBRISENTAN [Suspect]
     Active Substance: AMBRISENTAN
     Indication: CONNECTIVE TISSUE DISORDER
  9. SIMVASTATIN. [Concomitant]
     Active Substance: SIMVASTATIN
  10. DIGOXIN. [Concomitant]
     Active Substance: DIGOXIN
  11. METOPROLOL SUCCINATE. [Concomitant]
     Active Substance: METOPROLOL SUCCINATE
  12. VITAMIN B12 [Concomitant]
     Active Substance: CYANOCOBALAMIN
  13. FOSAMAX [Concomitant]
     Active Substance: ALENDRONATE SODIUM
  14. ALENDRONATE [Concomitant]
     Active Substance: ALENDRONATE SODIUM
  15. LISINOPRIL. [Concomitant]
     Active Substance: LISINOPRIL
  16. AMBRISENTAN [Suspect]
     Active Substance: AMBRISENTAN
     Indication: PULMONARY ARTERIAL HYPERTENSION
  17. ASPIRIN                            /00002701/ [Concomitant]
     Active Substance: ASPIRIN
  18. PANTOPRAZOLE [Concomitant]
     Active Substance: PANTOPRAZOLE SODIUM
  19. DOXYCYCLINE. [Concomitant]
     Active Substance: DOXYCYCLINE
  20. FLORA Q                            /00079701/ [Concomitant]
  21. NITROSTAT [Concomitant]
     Active Substance: NITROGLYCERIN

REACTIONS (8)
  - Pneumonia [Recovered/Resolved]
  - Anaemia [Unknown]
  - Duodenal ulcer haemorrhage [Recovered/Resolved]
  - Septic shock [Recovered/Resolved]
  - Transaminases abnormal [Unknown]
  - Colitis [Recovered/Resolved]
  - Acute respiratory failure [Recovered/Resolved]
  - Cardiac failure congestive [Unknown]
